FAERS Safety Report 7093069-X (Version None)
Quarter: 2010Q4

REPORT INFORMATION
  Report Type: 
  Country: None (occurrence: None)
  Receive Date: 20101110
  Receipt Date: 20101102
  Transmission Date: 20110411
  Serious: Yes (Death, Life-Threatening, Hospitalization)
  Sender: FDA-Public Use
  Company Number: EG-ELI_LILLY_AND_COMPANY-EG200904002045

PATIENT
  Age: 40 Year
  Sex: Male
  Weight: 86 kg

DRUGS (6)
  1. PEMETREXED [Suspect]
     Indication: NON-SMALL CELL LUNG CANCER
     Dosage: 500 MG/M2, EVERY 3 WEEKS
     Route: 042
     Dates: start: 20090130, end: 20090425
  2. CISPLATIN [Suspect]
     Indication: NON-SMALL CELL LUNG CANCER
     Dosage: 75 MG/KG, UNKNOWN
     Route: 042
     Dates: end: 20090313
  3. FOLIC ACID [Concomitant]
     Indication: PROPHYLAXIS
     Dosage: 500 UG, UNK
  4. VITAMIN B-12 [Concomitant]
     Indication: PROPHYLAXIS
     Dosage: 1000 UG, UNK
     Dates: start: 20090128
  5. DEXAMETHASONE [Concomitant]
     Indication: PROPHYLAXIS
     Dosage: 4 MG, 2/D
     Route: 065
     Dates: start: 20090312, end: 20090314
  6. KYTRIL [Concomitant]

REACTIONS (1)
  - HAEMATEMESIS [None]
